FAERS Safety Report 8247267-X (Version None)
Quarter: 2012Q1

REPORT INFORMATION
  Report Type: 
  Country: None (occurrence: None)
  Receive Date: 20120329
  Receipt Date: 20120329
  Transmission Date: 20120608
  Serious: No
  Sender: FDA-Public Use
  Company Number: None

PATIENT
  Age: 34 Year
  Sex: Male

DRUGS (2)
  1. NORVASC [Suspect]
     Dates: start: 20091116, end: 20091202
  2. PRINZIDE [Suspect]
     Dates: start: 20091102, end: 20091116

REACTIONS (3)
  - ACUTE HEPATIC FAILURE [None]
  - RENAL FAILURE [None]
  - LIVER TRANSPLANT [None]
